FAERS Safety Report 5002957-7 (Version None)
Quarter: 2006Q2

REPORT INFORMATION
  Report Type: 
  Country: None (occurrence: None)
  Receive Date: 20060516
  Receipt Date: 20060323
  Transmission Date: 20061013
  Serious: Yes (Other)
  Sender: FDA-Public Use
  Company Number: DE-GLAXOSMITHKLINE-D0049168A

PATIENT
  Age: 44 Year
  Sex: Female
  Weight: 76 kg

DRUGS (6)
  1. LAMICTAL [Suspect]
     Indication: EPILEPSY
     Dosage: 75MG TWICE PER DAY
     Route: 048
     Dates: end: 20060101
  2. CLOMIFEN [Concomitant]
     Dosage: 30MG PER DAY
     Route: 065
  3. UTROGEST [Concomitant]
     Dosage: 2CAP TWICE PER DAY
     Route: 067
  4. CHORIOGONADOTROPHIN [Concomitant]
     Dosage: 5000IU TWICE PER DAY
     Route: 065
  5. MENOTROPINS [Concomitant]
     Dosage: 1CAP PER DAY
     Route: 048
  6. PRIMIDONE [Concomitant]
     Indication: EPILEPSY
     Route: 065
     Dates: start: 20040101

REACTIONS (6)
  - ANTIBODY TEST POSITIVE [None]
  - ARTHRALGIA [None]
  - BONE PAIN [None]
  - JOINT SWELLING [None]
  - RHEUMATOID FACTOR INCREASED [None]
  - SYSTEMIC LUPUS ERYTHEMATOSUS [None]
